FAERS Safety Report 17295961 (Version 1)
Quarter: 2020Q1

REPORT INFORMATION
  Report Type: Spontaneous
  Country: CN (occurrence: CN)
  Receive Date: 20200121
  Receipt Date: 20200121
  Transmission Date: 20200409
  Serious: Yes (Other)
  Sender: FDA-Public Use
  Company Number: CN-CMP PHARMA-2020CMP00001

PATIENT
  Age: 62 Year
  Sex: Female

DRUGS (1)
  1. TRIAMCINOLONE [Suspect]
     Active Substance: TRIAMCINOLONE
     Indication: MACULAR OEDEMA
     Dosage: 4 MG, ONCE

REACTIONS (1)
  - Intraocular pressure increased [Recovered/Resolved]
